FAERS Safety Report 10718088 (Version 1)
Quarter: 2015Q1

REPORT INFORMATION
  Report Type: Spontaneous
  Country: US (occurrence: US)
  Receive Date: 20150117
  Receipt Date: 20150117
  Transmission Date: 20150721
  Serious: Yes (Death, Hospitalization)
  Sender: FDA-Public Use
  Company Number: US-JNJFOC-20150107951

PATIENT
  Age: 43 Year
  Sex: Female

DRUGS (1)
  1. DIPHENHYDRAMINE [Suspect]
     Active Substance: DIPHENHYDRAMINE
     Indication: SUICIDE ATTEMPT
     Route: 048

REACTIONS (10)
  - Respiratory arrest [None]
  - Brain oedema [None]
  - Cardiac arrest [None]
  - Completed suicide [None]
  - Intentional overdose [None]
  - Skin abrasion [None]
  - Bronchopneumonia [None]
  - Toxicity to various agents [Fatal]
  - Overdose [Fatal]
  - Disseminated intravascular coagulation [None]
